FAERS Safety Report 10053263 (Version 2)
Quarter: 2014Q2

REPORT INFORMATION
  Report Type: Report from Study
  Country: JP (occurrence: JP)
  Receive Date: 20140402
  Receipt Date: 20140503
  Transmission Date: 20141212
  Serious: Yes (Hospitalization)
  Sender: FDA-Public Use
  Company Number: PHHY2014JP038140

PATIENT
  Age: 51 Year
  Sex: Female
  Weight: 50 kg

DRUGS (6)
  1. FTY 720 [Suspect]
     Indication: MULTIPLE SCLEROSIS
     Dosage: 0.5 MG, QD
     Route: 048
     Dates: start: 20130314, end: 201311
  2. DIOVAN [Concomitant]
     Dosage: 80 MG, UNK
     Route: 048
  3. METHYCOBAL [Concomitant]
     Dosage: 1500 UG, UNK
     Route: 048
  4. AMLODIPINE [Concomitant]
     Dosage: 5 MG, UNK
     Route: 048
  5. GASDOCK [Concomitant]
     Dosage: 20 MG, UNK
     Route: 048
  6. ZOPICOOL [Concomitant]
     Dosage: 7.5 MG, UNK
     Route: 048

REACTIONS (11)
  - Jaundice [Recovered/Resolved]
  - Hepatitis B core antibody positive [Unknown]
  - Hepatic function abnormal [Recovered/Resolved]
  - Malaise [Recovered/Resolved]
  - Nausea [Recovered/Resolved]
  - Alanine aminotransferase increased [Unknown]
  - Aspartate aminotransferase increased [Unknown]
  - Blood bilirubin increased [Unknown]
  - Blood alkaline phosphatase increased [Unknown]
  - Prothrombin level increased [Unknown]
  - Platelet count increased [Unknown]
